FAERS Safety Report 13840956 (Version 2)
Quarter: 2017Q3

REPORT INFORMATION
  Report Type: Spontaneous
  Country: ZA (occurrence: ZA)
  Receive Date: 20170807
  Receipt Date: 20170810
  Transmission Date: 20171127
  Serious: Yes (Hospitalization)
  Sender: FDA-Public Use
  Company Number: ZA-PFIZER INC-2017325004

PATIENT
  Sex: Male

DRUGS (1)
  1. ARYCOR [Suspect]
     Active Substance: AMIODARONE HYDROCHLORIDE
     Indication: ARRHYTHMIA
     Dosage: 100 MG, DAILY
     Route: 048
     Dates: start: 20160601

REACTIONS (6)
  - Haematuria [Unknown]
  - Hepatic function abnormal [Unknown]
  - Proteinuria [Unknown]
  - Ataxia [Unknown]
  - Cardiac failure [Unknown]
  - Renal impairment [Unknown]
